FAERS Safety Report 7069529-4 (Version None)
Quarter: 2010Q4

REPORT INFORMATION
  Report Type: 
  Country: None (occurrence: None)
  Receive Date: 20101028
  Receipt Date: 20100409
  Transmission Date: 20110411
  Serious: No
  Sender: FDA-Public Use
  Company Number: US-WYE-H13969110

PATIENT
  Sex: Male

DRUGS (3)
  1. PROTONIX [Suspect]
     Dosage: UNKNOWN
     Route: 048
  2. TRAMADOL HCL [Concomitant]
  3. HYDROCODONE [Concomitant]

REACTIONS (1)
  - DRUG SCREEN POSITIVE [None]
